FAERS Safety Report 24592310 (Version 1)
Quarter: 2024Q4

REPORT INFORMATION
  Report Type: Spontaneous
  Country: CN (occurrence: CN)
  Receive Date: 20241108
  Receipt Date: 20241108
  Transmission Date: 20250115
  Serious: Yes (Other)
  Sender: GRIFOLS
  Company Number: CN-IGSA-BIG0031382

PATIENT
  Age: 59 Year
  Sex: Male
  Weight: 67 kg

DRUGS (1)
  1. ALBUTEIN [Suspect]
     Active Substance: ALBUMIN HUMAN
     Indication: Hypoproteinaemia
     Dosage: 20 GRAM
     Route: 041
     Dates: start: 20220302, end: 20220303

REACTIONS (2)
  - Alanine aminotransferase increased [Recovering/Resolving]
  - Aspartate aminotransferase increased [Recovering/Resolving]

NARRATIVE: CASE EVENT DATE: 20220303
